FAERS Safety Report 17452897 (Version 3)
Quarter: 2020Q3

REPORT INFORMATION
  Report Type: Report from Study
  Country: US (occurrence: US)
  Receive Date: 20200224
  Receipt Date: 20200714
  Transmission Date: 20201102
  Serious: No
  Sender: FDA-Public Use
  Company Number: NVSC2020US051375

PATIENT
  Sex: Male

DRUGS (2)
  1. ILARIS [Suspect]
     Active Substance: CANAKINUMAB
     Indication: PYREXIA
     Dosage: 60 MG, Q4W
     Route: 058
     Dates: start: 20191003
  2. ILARIS [Suspect]
     Active Substance: CANAKINUMAB
     Dosage: 90 MG, EVERY 28 DAYS
     Route: 058

REACTIONS (2)
  - Accidental exposure to product [Unknown]
  - Pyrexia [Unknown]
